FAERS Safety Report 4433758-6 (Version None)
Quarter: 2004Q3

REPORT INFORMATION
  Report Type: 
  Country: None (occurrence: None)
  Receive Date: 20040824
  Receipt Date: 20040824
  Transmission Date: 20050211
  Serious: No
  Sender: FDA-Public Use
  Company Number: None

PATIENT
  Age: 26 Year
  Sex: Male
  Weight: 72.5755 kg

DRUGS (2)
  1. XANAX [Suspect]
     Indication: GENERALISED ANXIETY DISORDER
     Dosage: 1 MG PO HS
     Route: 048
     Dates: start: 20040817
  2. XANAX [Suspect]
     Indication: SOCIAL PHOBIA
     Dosage: 1 MG PO HS
     Route: 048
     Dates: start: 20040817

REACTIONS (1)
  - PANIC DISORDER [None]
